FAERS Safety Report 5337788-1 (Version None)
Quarter: 2007Q2

REPORT INFORMATION
  Report Type: 
  Country: None (occurrence: None)
  Receive Date: 20070308
  Receipt Date: 20061215
  Transmission Date: 20071010
  Serious: No
  Sender: FDA-Public Use
  Company Number: 2006-BP-14684BP

PATIENT
  Sex: Female

DRUGS (5)
  1. SPIRIVA [Suspect]
     Dosage: (18 MCG)
  2. ASPRIN (ACETYLSALICYLIC ACID) [Concomitant]
  3. METHADONE HCL [Concomitant]
  4. TRAZODONE HCL [Concomitant]
  5. ULTRAM [Concomitant]

REACTIONS (1)
  - PULMONARY FUNCTION TEST ABNORMAL [None]
